FAERS Safety Report 9381901 (Version 1)
Quarter: 2013Q3

REPORT INFORMATION
  Report Type: Spontaneous
  Country: TW (occurrence: TW)
  Receive Date: 20130703
  Receipt Date: 20130703
  Transmission Date: 20140515
  Serious: Yes (Other)
  Sender: FDA-Public Use
  Company Number: PHHY2013TW067788

PATIENT
  Age: 19 Year
  Sex: Male

DRUGS (1)
  1. WARFARIN [Suspect]

REACTIONS (6)
  - Calciphylaxis [Recovered/Resolved]
  - Fat necrosis [Recovered/Resolved]
  - Calcinosis [Recovered/Resolved]
  - Panniculitis [Recovered/Resolved]
  - Hypervitaminosis D [Unknown]
  - Skin ulcer [Recovered/Resolved]
